FAERS Safety Report 17969695 (Version 1)
Quarter: 2020Q3

REPORT INFORMATION
  Report Type: Spontaneous
  Country: US (occurrence: US)
  Receive Date: 20200701
  Receipt Date: 20200701
  Transmission Date: 20201103
  Serious: Yes (Hospitalization, Other)
  Sender: FDA-Public Use
  Company Number: US-BAYER-2020-126081

PATIENT
  Age: 75 Year
  Sex: Female
  Weight: 150 kg

DRUGS (3)
  1. ASPIRIN (PAIN AND FEVER) [Suspect]
     Active Substance: ASPIRIN
     Dosage: UNK
  2. PRISTIQ EXTENDED?RELEASE [Suspect]
     Active Substance: DESVENLAFAXINE SUCCINATE
     Dosage: UNK
  3. POTASSIUM [Suspect]
     Active Substance: POTASSIUM
     Dosage: UNK

REACTIONS (2)
  - Cardiac failure congestive [Recovered/Resolved]
  - Hypoacusis [None]

NARRATIVE: CASE EVENT DATE: 201812
